FAERS Safety Report 6648715-9 (Version None)
Quarter: 2010Q1

REPORT INFORMATION
  Report Type: 
  Country: None (occurrence: None)
  Receive Date: 20100324
  Receipt Date: 20100311
  Transmission Date: 20100710
  Serious: Yes (Other)
  Sender: FDA-Public Use
  Company Number: PHEH2010US03024

PATIENT
  Sex: Female

DRUGS (1)
  1. ZOMETA [Suspect]
     Dosage: UNK, UNK
     Route: 042
     Dates: start: 20080923, end: 20091201

REACTIONS (4)
  - BONE FRAGMENTATION [None]
  - LOOSE TOOTH [None]
  - OSTEONECROSIS [None]
  - TOOTH ABSCESS [None]
